FAERS Safety Report 8729766 (Version 2)
Quarter: 2012Q4

REPORT INFORMATION
  Report Type: 
  Country: JP (occurrence: JP)
  Receive Date: 20120817
  Receipt Date: 20120905
  Transmission Date: 20130627
  Serious: Yes (Other)
  Sender: FDA-Public Use
  Company Number: JP-SANOFI-AVENTIS-2012SA059105

PATIENT
  Age: 63 Year
  Sex: Male

DRUGS (1)
  1. MYSLEE [Suspect]
     Indication: INSOMNIA
     Route: 048

REACTIONS (2)
  - Eye movement disorder [Unknown]
  - Diplopia [Unknown]
